FAERS Safety Report 25701909 (Version 2)
Quarter: 2025Q3

REPORT INFORMATION
  Report Type: Report from Study
  Country: MX (occurrence: MX)
  Receive Date: 20250819
  Receipt Date: 20250825
  Transmission Date: 20251020
  Serious: Yes (Hospitalization, Other)
  Sender: AMGEN
  Company Number: MX-AMGEN-MEXSL2025159713

PATIENT
  Age: 52 Year
  Sex: Female

DRUGS (2)
  1. VECTIBIX [Suspect]
     Active Substance: PANITUMUMAB
     Indication: Bladder cancer
     Route: 065
     Dates: start: 20250620
  2. VECTIBIX [Suspect]
     Active Substance: PANITUMUMAB
     Indication: Off label use

REACTIONS (6)
  - Blood electrolytes decreased [Unknown]
  - Fatigue [Unknown]
  - Cachexia [Unknown]
  - Dry mouth [Unknown]
  - Dry skin [Unknown]
  - Off label use [Unknown]

NARRATIVE: CASE EVENT DATE: 20250101
